FAERS Safety Report 23161206 (Version 4)
Quarter: 2023Q4

REPORT INFORMATION
  Report Type: Report from Study
  Country: JP (occurrence: JP)
  Receive Date: 20231108
  Receipt Date: 20231204
  Transmission Date: 20240109
  Serious: Yes (Other)
  Sender: FDA-Public Use
  Company Number: JP-ALXN-A202215896

PATIENT
  Age: 48 Year
  Sex: Female
  Weight: 48.1 kg

DRUGS (22)
  1. SOLIRIS [Suspect]
     Active Substance: ECULIZUMAB
     Indication: Neuromyelitis optica spectrum disorder
     Dosage: 900 MILLIGRAM, QW
     Route: 042
     Dates: start: 20220616, end: 20220707
  2. SOLIRIS [Suspect]
     Active Substance: ECULIZUMAB
     Dosage: 1200 MILLIGRAM, Q2W
     Route: 042
     Dates: start: 20220714, end: 20230629
  3. PREDNISOLONE [Suspect]
     Active Substance: PREDNISOLONE
     Indication: Neuromyelitis optica spectrum disorder
     Dosage: 50 MILLIGRAM, TID
     Route: 048
     Dates: start: 20220501, end: 20220502
  4. PREDNISOLONE [Suspect]
     Active Substance: PREDNISOLONE
     Indication: Cystitis haemorrhagic
     Dosage: 50 MILLIGRAM, TID
     Route: 048
     Dates: start: 20220506, end: 20220514
  5. PREDNISOLONE [Suspect]
     Active Substance: PREDNISOLONE
     Indication: Gastroenteritis
     Dosage: 40 MILLIGRAM, TID
     Route: 048
     Dates: start: 20220515, end: 20220518
  6. PREDNISOLONE [Suspect]
     Active Substance: PREDNISOLONE
     Dosage: 30 MILLIGRAM, TID
     Route: 048
     Dates: start: 20220519, end: 20220522
  7. PREDNISOLONE [Suspect]
     Active Substance: PREDNISOLONE
     Dosage: 25 MILLIGRAM, BID
     Route: 048
     Dates: start: 20220523, end: 20220529
  8. PREDNISOLONE [Suspect]
     Active Substance: PREDNISOLONE
     Dosage: 20 MILLIGRAM, QD
     Route: 048
     Dates: start: 20220530, end: 20220727
  9. PREDNISOLONE [Suspect]
     Active Substance: PREDNISOLONE
     Dosage: 18 MILLIGRAM, QD
     Route: 048
     Dates: start: 20220728, end: 20220824
  10. PREDNISOLONE [Suspect]
     Active Substance: PREDNISOLONE
     Dosage: 16 MILLIGRAM, QD
     Route: 048
     Dates: start: 20220825, end: 20220921
  11. PREDNISOLONE [Suspect]
     Active Substance: PREDNISOLONE
     Dosage: 10 MILLIGRAM, QD
     Route: 048
     Dates: start: 20220922, end: 20221019
  12. PREDNISOLONE [Suspect]
     Active Substance: PREDNISOLONE
     Dosage: 5 MILLIGRAM, QD
     Route: 048
     Dates: start: 20221020, end: 20221214
  13. PREDNISOLONE [Suspect]
     Active Substance: PREDNISOLONE
     Dosage: 4 MILLIGRAM, QD
     Route: 048
     Dates: start: 20221215, end: 20230614
  14. PREDNISOLONE [Suspect]
     Active Substance: PREDNISOLONE
     Dosage: 3 MILLIGRAM, QD
     Route: 048
     Dates: start: 20230615
  15. REBAMIPIDE [Concomitant]
     Active Substance: REBAMIPIDE
     Indication: Neuromyelitis optica spectrum disorder
     Dosage: 100 MILLIGRAM, TID
     Route: 048
     Dates: start: 20220428, end: 20220824
  16. FAMOTIDINE [Concomitant]
     Active Substance: FAMOTIDINE
     Indication: Neuromyelitis optica spectrum disorder
     Dosage: 0.5 MILLIGRAM, QD
     Route: 048
     Dates: start: 20220502, end: 20220727
  17. FAMOTIDINE [Concomitant]
     Active Substance: FAMOTIDINE
     Indication: Gastroenteritis
  18. ELDECALCITOL [Concomitant]
     Active Substance: ELDECALCITOL
     Indication: Neuromyelitis optica spectrum disorder
     Dosage: 0.75 MICROGRAM, QD
     Route: 048
     Dates: start: 20220516, end: 20230712
  19. RIVOTRIL [Concomitant]
     Active Substance: CLONAZEPAM
     Indication: Neuromyelitis optica spectrum disorder
     Dosage: 0.5 MILLIGRAM, QD
     Route: 048
     Dates: start: 20220516, end: 20220727
  20. TEGRETOL [Concomitant]
     Active Substance: CARBAMAZEPINE
     Indication: Neuromyelitis optica spectrum disorder
     Dosage: 100 MILLIGRAM, BID
     Route: 048
     Dates: start: 20220530, end: 20220612
  21. TEGRETOL [Concomitant]
     Active Substance: CARBAMAZEPINE
     Dosage: 300 MILLIGRAM, BID
     Route: 048
     Dates: start: 20220613, end: 20220727
  22. TEGRETOL [Concomitant]
     Active Substance: CARBAMAZEPINE
     Dosage: 200 MILLIGRAM, BID
     Route: 048
     Dates: start: 20220728, end: 20220921

REACTIONS (5)
  - Cystitis haemorrhagic [Recovered/Resolved]
  - COVID-19 [Recovered/Resolved]
  - Cystitis escherichia [Recovered/Resolved]
  - Gastroenteritis [Recovered/Resolved]
  - Depression [Recovering/Resolving]

NARRATIVE: CASE EVENT DATE: 20220801
